FAERS Safety Report 6165265-7 (Version None)
Quarter: 2009Q2

REPORT INFORMATION
  Report Type: 
  Country: None (occurrence: None)
  Receive Date: 20090423
  Receipt Date: 20090415
  Transmission Date: 20091009
  Serious: Yes (Hospitalization)
  Sender: FDA-Public Use
  Company Number: A0775214A

PATIENT
  Sex: Female

DRUGS (2)
  1. TYKERB [Suspect]
     Indication: DRUG USE FOR UNKNOWN INDICATION
     Route: 048
  2. XELODA [Suspect]
     Route: 065

REACTIONS (5)
  - DIARRHOEA [None]
  - ENZYME ABNORMALITY [None]
  - METABOLIC DISORDER [None]
  - NAUSEA [None]
  - SYNCOPE [None]
